FAERS Safety Report 8786182 (Version 1)
Quarter: 2012Q4

REPORT INFORMATION
  Report Type: 
  Country: US (occurrence: US)
  Receive Date: 20120914
  Receipt Date: 20120914
  Transmission Date: 20130627
  Serious: Yes (Other)
  Sender: FDA-Public Use
  Company Number: PHEH2012US017633

PATIENT
  Sex: Female

DRUGS (1)
  1. MIACALCIN [Suspect]
     Dosage: UNK UKN, UNK

REACTIONS (3)
  - Paralysis [Unknown]
  - Pyrexia [Unknown]
  - Bone operation [None]
